FAERS Safety Report 10570418 (Version 1)
Quarter: 2014Q4

REPORT INFORMATION
  Report Type: Spontaneous
  Country: US (occurrence: US)
  Receive Date: 20141107
  Receipt Date: 20141107
  Transmission Date: 20150529
  Serious: Yes (Death, Hospitalization, Other)
  Sender: FDA-Public Use
  Company Number: US-SA-2014SA150069

PATIENT
  Age: 92 Year
  Sex: Male

DRUGS (22)
  1. BLINDED THERAPY [Suspect]
     Active Substance: INVESTIGATIONAL PRODUCT
     Indication: PROSTATE CANCER
     Route: 048
     Dates: start: 20130131, end: 20130305
  2. HYDROCHLOROTHIAZIDE. [Concomitant]
     Active Substance: HYDROCHLOROTHIAZIDE
     Indication: HYPERTENSION
     Dosage: 25 MG (25 MG,1 IN 1 D)
     Route: 048
     Dates: start: 2000
  3. VITAMIN B12 [Concomitant]
     Active Substance: CYANOCOBALAMIN
     Indication: IRON DEFICIENCY ANAEMIA
     Dosage: (1 IN 1 M)
     Route: 030
     Dates: start: 20130207
  4. ISOSORBIDE DINITRATE. [Concomitant]
     Active Substance: ISOSORBIDE DINITRATE
     Indication: CORONARY ARTERY DISEASE
     Dosage: 80 MG (40 MG,2 IN 1 D)
     Route: 048
     Dates: start: 2001
  5. ACETAMINOPHEN. [Concomitant]
     Active Substance: ACETAMINOPHEN
     Indication: PYREXIA
     Dosage: (650 MG,AS REQUIRED)
     Route: 048
     Dates: start: 20130207
  6. ACETAMINOPHEN. [Concomitant]
     Active Substance: ACETAMINOPHEN
     Indication: PAIN
     Dosage: (650 MG,AS REQUIRED)
     Route: 048
     Dates: start: 20130207
  7. PLAVIX [Suspect]
     Active Substance: CLOPIDOGREL BISULFATE
     Indication: CORONARY ARTERY DISEASE
     Route: 048
     Dates: start: 20120106, end: 20130204
  8. SIMVASTATIN. [Concomitant]
     Active Substance: SIMVASTATIN
     Indication: HYPERCHOLESTEROLAEMIA
     Dosage: 10 MG (10 MG,1 IN 1   ?D)
     Dates: start: 2000
  9. ALPRAZOLAM. [Concomitant]
     Active Substance: ALPRAZOLAM
     Indication: ANXIETY
     Dosage: 2 MG (2 MG,1 IN 1 D)
     Dates: start: 2008
  10. RANEXA [Concomitant]
     Active Substance: RANOLAZINE
     Indication: CORONARY ARTERY DISEASE
     Dosage: 1000 MG (500 MG,2 IN 1 D)
     Dates: start: 20130207
  11. ATENOLOL. [Concomitant]
     Active Substance: ATENOLOL
     Indication: HYPERTENSION
     Dosage: 50 MG (50 MG,1 IN 1 D)
     Route: 048
     Dates: start: 2000
  12. FERROUS SULFATE [Concomitant]
     Active Substance: FERROUS SULFATE\FERROUS SULFATE, DRIED
     Indication: IRON DEFICIENCY ANAEMIA
     Dosage: 975 MG (325 MG,3 IN 1 D)
     Route: 048
     Dates: start: 20130207
  13. OMEPRAZOLE. [Concomitant]
     Active Substance: OMEPRAZOLE
     Indication: GASTROOESOPHAGEAL REFLUX DISEASE
     Dosage: 20 MG (20 MG,1 IN 1
     Dates: start: 2000
  14. LISINOPRIL. [Concomitant]
     Active Substance: LISINOPRIL
     Indication: HYPERTENSION
     Dosage: 20 MG (20 MG,1 IN 1 D)
     Route: 048
     Dates: start: 2000
  15. DRUGS FOR TREATMENT OF BONE DISEASES [Concomitant]
     Indication: PROPHYLAXIS
     Dosage: 1 (1 ,1 IN 1 D)
     Route: 048
     Dates: start: 2012
  16. ALL OTHER THERAPEUTIC PRODUCTS [Concomitant]
     Active Substance: UNSPECIFIED INGREDIENT
     Indication: PROSTATE CANCER
     Dosage: 115200 MG (80 MG,1 IN 1 MIN)?SUBDERMAL
     Dates: start: 20120113
  17. ONDANSETRON [Concomitant]
     Active Substance: ONDANSETRON
     Indication: NAUSEA
     Dosage: 4 MG,AS REQUIRED
     Route: 048
     Dates: start: 20130207
  18. VITAMIN C [Concomitant]
     Active Substance: ASCORBIC ACID
     Indication: IRON DEFICIENCY ANAEMIA
     Dosage: 1000 MG (500 MG,2 IN 1 D)
     Route: 048
     Dates: start: 20130207
  19. CEPHALEXIN. [Concomitant]
     Active Substance: CEPHALEXIN
     Indication: URINARY TRACT INFECTION
     Dosage: 1500 MG (500 MG,3 IN 1 D)
     Route: 048
     Dates: start: 20130130, end: 20130204
  20. ASPIRIN. [Concomitant]
     Active Substance: ASPIRIN
     Indication: CARDIOVASCULAR EVENT PROPHYLAXIS
     Dosage: 81 MG (81 MG,1 IN 1 D)
     Route: 048
     Dates: start: 1970, end: 20130204
  21. COLACE [Concomitant]
     Active Substance: DOCUSATE SODIUM
     Indication: CONSTIPATION PROPHYLAXIS
     Dosage: 200 MG (100 MG,2 IN 1 D)
     Route: 048
     Dates: start: 20130207
  22. PROLIA [Concomitant]
     Active Substance: DENOSUMAB
     Indication: PROSTATE CANCER
     Dosage: 0.3333 MG (60 MG,1 IN 6 M)
     Route: 058
     Dates: start: 20120315

REACTIONS (3)
  - General physical health deterioration [Fatal]
  - Haematuria [Not Recovered/Not Resolved]
  - Suicide attempt [Recovered/Resolved]

NARRATIVE: CASE EVENT DATE: 20130204
